FAERS Safety Report 10469647 (Version 1)
Quarter: 2014Q3

REPORT INFORMATION
  Report Type: Spontaneous
  Country: US (occurrence: None)
  Receive Date: 20140905
  Receipt Date: 20140905
  Transmission Date: 20150326
  Serious: Yes (Hospitalization)
  Sender: FDA-Public Use
  Company Number: A-NJ2014-96349

PATIENT
  Age: 56 Year
  Sex: Female

DRUGS (2)
  1. REVATIO (SILDENAFIL CITRATE) [Concomitant]
  2. VELETRI [Suspect]
     Active Substance: EPOPROSTENOL
     Indication: COR PULMONALE CHRONIC
     Route: 041
     Dates: start: 20130626

REACTIONS (5)
  - Dyspnoea [None]
  - Device damage [None]
  - Device alarm issue [None]
  - Palpitations [None]
  - Device malfunction [None]
